FAERS Safety Report 21988513 (Version 2)
Quarter: 2023Q1

REPORT INFORMATION
  Report Type: Spontaneous
  Country: FR (occurrence: FR)
  Receive Date: 20230214
  Receipt Date: 20230221
  Transmission Date: 20230418
  Serious: Yes (Death)
  Sender: FDA-Public Use
  Company Number: FR-STRIDES ARCOLAB LIMITED-2023SP002130

PATIENT
  Age: 13 Year
  Sex: Female

DRUGS (2)
  1. METOCLOPRAMIDE [Suspect]
     Active Substance: METOCLOPRAMIDE
     Indication: Product used for unknown indication
     Dosage: UNK; THE PATIENT INGESTED SUICIDE ATTEMPT WITH SODIUM NITRITE AND METOCLOPRAMIDE
     Route: 048
  2. SODIUM NITRITE [Suspect]
     Active Substance: SODIUM NITRITE
     Indication: Product used for unknown indication
     Dosage: UNK; THE PATIENT INGESTED SUICIDE ATTEMPT WITH SODIUM NITRITE AND METOCLOPRAMIDE
     Route: 048

REACTIONS (8)
  - Pulmonary haemorrhage [Fatal]
  - Anoxia [Fatal]
  - Asphyxia [Fatal]
  - Visceral congestion [Fatal]
  - Cardiac failure acute [Fatal]
  - Drug abuse [Fatal]
  - Toxicity to various agents [Fatal]
  - Completed suicide [Fatal]
